FAERS Safety Report 25528330 (Version 1)
Quarter: 2025Q3

REPORT INFORMATION
  Report Type: Spontaneous
  Country: EU (occurrence: EU)
  Receive Date: 20250708
  Receipt Date: 20250708
  Transmission Date: 20251020
  Serious: Yes (Hospitalization, Other)
  Sender: BRISTOL-MYERS SQUIBB COMPANY
  Company Number: None

PATIENT
  Age: 70 Year
  Sex: Male
  Weight: 92 kg

DRUGS (1)
  1. NIVOLUMAB [Suspect]
     Active Substance: NIVOLUMAB
     Indication: Lentigo maligna
     Route: 042
     Dates: start: 20220707, end: 20220815

REACTIONS (2)
  - Myocarditis [Not Recovered/Not Resolved]
  - Miosis [Not Recovered/Not Resolved]

NARRATIVE: CASE EVENT DATE: 20220807
